FAERS Safety Report 16921821 (Version 1)
Quarter: 2019Q4

REPORT INFORMATION
  Report Type: Report from Study
  Country: CA (occurrence: CA)
  Receive Date: 20191015
  Receipt Date: 20191015
  Transmission Date: 20200122
  Serious: Yes (Hospitalization)
  Sender: FDA-Public Use
  Company Number: CA-HLSUS-2019-CA-001354

PATIENT
  Age: 36 Year
  Sex: Male
  Weight: 74 kg

DRUGS (1)
  1. CLOZAPINE. [Suspect]
     Active Substance: CLOZAPINE
     Indication: SCHIZOPHRENIA
     Dosage: 250 MG ONCE DAILY
     Route: 048

REACTIONS (5)
  - C-reactive protein increased [Unknown]
  - Troponin increased [Unknown]
  - Viral myocarditis [Unknown]
  - Upper respiratory tract infection [Unknown]
  - Myocarditis [Unknown]
